FAERS Safety Report 7783447-5 (Version None)
Quarter: 2011Q3

REPORT INFORMATION
  Report Type: 
  Country: None (occurrence: None)
  Receive Date: 20110928
  Receipt Date: 20110928
  Transmission Date: 20111222
  Serious: Yes (Other)
  Sender: FDA-Public Use
  Company Number: None

PATIENT
  Sex: Male
  Weight: 86.182 kg

DRUGS (1)
  1. CREST PRO-HEALTH [Suspect]
     Indication: GINGIVITIS
     Dosage: NORMAL BRUSHING
     Route: 004
     Dates: start: 20110813, end: 20110912

REACTIONS (3)
  - STOMATITIS [None]
  - GLOSSODYNIA [None]
  - ORAL DISCOMFORT [None]
